FAERS Safety Report 6997160-5 (Version None)
Quarter: 2010Q3

REPORT INFORMATION
  Report Type: 
  Country: None (occurrence: None)
  Receive Date: 20100918
  Receipt Date: 20090911
  Transmission Date: 20110219
  Serious: No
  Sender: FDA-Public Use
  Company Number: US-WYE-H10962709

PATIENT
  Sex: Female
  Weight: 99.43 kg

DRUGS (3)
  1. PRISTIQ [Suspect]
     Indication: DEPRESSION
     Route: 048
     Dates: start: 20070901
  2. PRISTIQ [Suspect]
     Indication: ANXIETY
  3. VALTREX [Concomitant]

REACTIONS (6)
  - DISTURBANCE IN ATTENTION [None]
  - DIZZINESS [None]
  - DRUG WITHDRAWAL SYNDROME [None]
  - DYSSTASIA [None]
  - EUPHORIC MOOD [None]
  - PRESYNCOPE [None]
